FAERS Safety Report 4953757-5 (Version None)
Quarter: 2006Q1

REPORT INFORMATION
  Report Type: 
  Country: None (occurrence: None)
  Receive Date: 20060327
  Receipt Date: 20060321
  Transmission Date: 20060701
  Serious: Yes (Other)
  Sender: FDA-Public Use
  Company Number: US-BOEHRINGER INGELHEIM PHARMACEUTICALS, INC.-2006-DE-01491GD

PATIENT
  Age: 52 Year
  Sex: Male

DRUGS (1)
  1. MIRAPEX [Suspect]
     Indication: PARKINSON'S DISEASE

REACTIONS (8)
  - BANKRUPTCY [None]
  - DIVORCED [None]
  - GAMBLING [None]
  - LIBIDO INCREASED [None]
  - LOSS OF EMPLOYMENT [None]
  - OBSESSIVE-COMPULSIVE PERSONALITY DISORDER [None]
  - PATHOLOGICAL GAMBLING [None]
  - SUICIDAL IDEATION [None]
